FAERS Safety Report 6045238-5 (Version None)
Quarter: 2009Q1

REPORT INFORMATION
  Report Type: 
  Country: None (occurrence: None)
  Receive Date: 20090121
  Receipt Date: 20090109
  Transmission Date: 20090719
  Serious: Yes (Other)
  Sender: FDA-Public Use
  Company Number: GB-PFIZER INC-2009156873

PATIENT

DRUGS (6)
  1. DOXYCYCLINE HYCLATE [Suspect]
     Indication: LOWER RESPIRATORY TRACT INFECTION
     Dosage: 100 MG, UNK
     Route: 048
     Dates: start: 20081218, end: 20081220
  2. AMITRIPTYLINE [Concomitant]
     Route: 048
     Dates: start: 20080820
  3. ACETYLSALICYLIC ACID [Concomitant]
     Route: 048
     Dates: start: 20040305
  4. ATORVASTATIN [Concomitant]
     Route: 048
     Dates: start: 20040305
  5. ESOMEPRAZOLE [Concomitant]
     Route: 048
     Dates: start: 20080413
  6. GAVISCON [Concomitant]
     Route: 048
     Dates: start: 20040705

REACTIONS (2)
  - CYANOSIS [None]
  - SKIN DISCOLOURATION [None]
